FAERS Safety Report 8089026-7 (Version None)
Quarter: 2012Q1

REPORT INFORMATION
  Report Type: 
  Country: None (occurrence: None)
  Receive Date: 20120128
  Receipt Date: 20110727
  Transmission Date: 20120608
  Serious: No
  Sender: FDA-Public Use
  Company Number: US-ABBOTT-11P-163-0700316-00

PATIENT
  Sex: Male
  Weight: 113.5 kg

DRUGS (5)
  1. PREVACID [Concomitant]
     Indication: DYSPEPSIA
  2. HUMIRA [Suspect]
     Dates: start: 20101201
  3. HUMIRA [Suspect]
     Indication: PSORIASIS
     Dates: start: 20100901
  4. PRILOSEC [Concomitant]
     Indication: DYSPEPSIA
  5. UNKNOWN BLOOD PRESSURE MEDICATION [Concomitant]
     Indication: HYPERTENSION

REACTIONS (7)
  - INJECTION SITE PAIN [None]
  - INCORRECT STORAGE OF DRUG [None]
  - INJECTION SITE ERYTHEMA [None]
  - INJECTION SITE PRURITUS [None]
  - INJECTION SITE IRRITATION [None]
  - INCORRECT PRODUCT STORAGE [None]
  - INJECTION SITE SWELLING [None]
